FAERS Safety Report 4785108-3 (Version None)
Quarter: 2005Q3

REPORT INFORMATION
  Report Type: 
  Country: None (occurrence: None)
  Receive Date: 20050928
  Receipt Date: 20050914
  Transmission Date: 20060218
  Serious: Yes (Hospitalization)
  Sender: FDA-Public Use
  Company Number: EWC050945709

PATIENT
  Age: 67 Year
  Sex: Female
  Weight: 70 kg

DRUGS (4)
  1. XIGRIS [Suspect]
     Indication: SEPSIS
     Dosage: 161 MG
     Dates: start: 20050904
  2. MOFOXITIN (CEFOXITIN SODIUM) [Concomitant]
  3. CIPROXIN (CIPROFLOXACIN LACTATE) [Concomitant]
  4. PIPERACILLIN [Concomitant]

REACTIONS (1)
  - LABORATORY TEST ABNORMAL [None]
